FAERS Safety Report 7392628-4 (Version None)
Quarter: 2011Q2

REPORT INFORMATION
  Report Type: 
  Country: None (occurrence: None)
  Receive Date: 20110404
  Receipt Date: 20110325
  Transmission Date: 20111010
  Serious: Yes (Hospitalization)
  Sender: FDA-Public Use
  Company Number: US-ASTRAZENECA-2010SE14367

PATIENT
  Age: 879 Month
  Sex: Female

DRUGS (2)
  1. CRESTOR [Suspect]
     Route: 048
  2. TOPROL-XL [Suspect]
     Route: 048

REACTIONS (6)
  - FALL [None]
  - DIZZINESS [None]
  - CONCUSSION [None]
  - UPPER LIMB FRACTURE [None]
  - BACK INJURY [None]
  - NAUSEA [None]
